FAERS Safety Report 20905572 (Version 1)
Quarter: 2022Q2

REPORT INFORMATION
  Report Type: Spontaneous
  Country: US (occurrence: US)
  Receive Date: 20220602
  Receipt Date: 20220602
  Transmission Date: 20220721
  Serious: No
  Sender: FDA-Public Use
  Company Number: US-BEH-2022145969

PATIENT
  Sex: Male

DRUGS (10)
  1. HIZENTRA [Suspect]
     Active Substance: HUMAN IMMUNOGLOBULIN G
     Indication: Immunodeficiency common variable
     Dosage: 22 GRAM, QOW
     Route: 058
     Dates: start: 20200118
  2. RELUGOLIX [Concomitant]
     Active Substance: RELUGOLIX
  3. SOLIQUA 100/33 [Concomitant]
     Active Substance: INSULIN GLARGINE\LIXISENATIDE
  4. CEFDINIR [Concomitant]
     Active Substance: CEFDINIR
  5. NOVOLIN N [Concomitant]
     Active Substance: INSULIN HUMAN
  6. STARLIX [Concomitant]
     Active Substance: NATEGLINIDE
  7. DOXYCYCLINE [Concomitant]
     Active Substance: DOXYCYCLINE
  8. CEFDINIR [Concomitant]
     Active Substance: CEFDINIR
  9. LEVAQUIN [Concomitant]
     Active Substance: LEVOFLOXACIN
  10. INVOKANA [Concomitant]
     Active Substance: CANAGLIFLOZIN

REACTIONS (2)
  - Skin hyperpigmentation [Not Recovered/Not Resolved]
  - Recalled product administered [Not Recovered/Not Resolved]
